FAERS Safety Report 5901608-4 (Version None)
Quarter: 2008Q3

REPORT INFORMATION
  Report Type: 
  Country: None (occurrence: None)
  Receive Date: 20080926
  Receipt Date: 20080926
  Transmission Date: 20090109
  Serious: Yes (Other)
  Sender: FDA-Public Use
  Company Number: None

PATIENT
  Age: 63 Year
  Sex: Female
  Weight: 72.5755 kg

DRUGS (1)
  1. ALEVE [Suspect]
     Indication: PAIN IN EXTREMITY
     Dosage: 2 TABLES 1-TIME PO
     Route: 048

REACTIONS (8)
  - DEHYDRATION [None]
  - EYE DISORDER [None]
  - FEELING ABNORMAL [None]
  - HEADACHE [None]
  - HYPOPHAGIA [None]
  - INSOMNIA [None]
  - VISUAL IMPAIRMENT [None]
  - VOMITING [None]
